FAERS Safety Report 10220601 (Version 1)
Quarter: 2014Q2

REPORT INFORMATION
  Report Type: Spontaneous
  Country: US (occurrence: None)
  Receive Date: 20140605
  Receipt Date: 20140605
  Transmission Date: 20141212
  Serious: Yes (Life-Threatening, Hospitalization, Disabling)
  Sender: FDA-Public Use
  Company Number: None

PATIENT
  Age: 43 Year
  Sex: Male
  Weight: 124.74 kg

DRUGS (1)
  1. Z-PACK [Suspect]
     Indication: INFLUENZA
     Dosage: 10 PILLS/ 2 ROUNDS ONE DAILY TAKEN BY MOUTH
     Route: 048

REACTIONS (1)
  - Guillain-Barre syndrome [None]
